FAERS Safety Report 6079244-1 (Version None)
Quarter: 2009Q1

REPORT INFORMATION
  Report Type: 
  Country: None (occurrence: None)
  Receive Date: 20090216
  Receipt Date: 20090210
  Transmission Date: 20090719
  Serious: Yes (Hospitalization)
  Sender: FDA-Public Use
  Company Number: PHEH2009US01585

PATIENT
  Sex: Male

DRUGS (4)
  1. TASIGNA [Suspect]
     Indication: CHRONIC MYELOID LEUKAEMIA
     Dosage: 800 MG, QD
     Dates: start: 20071220, end: 20080304
  2. TASIGNA [Suspect]
     Dosage: 400 MG, QD
  3. LISINOPRIL [Concomitant]
  4. DARVOCET-N 100 [Concomitant]
     Dosage: 100 MG, PRN

REACTIONS (3)
  - ARRHYTHMIA [None]
  - NAUSEA [None]
  - RENAL FAILURE [None]
